FAERS Safety Report 23802705 (Version 1)
Quarter: 2024Q2

REPORT INFORMATION
  Report Type: Spontaneous
  Country: US (occurrence: None)
  Receive Date: 20240501
  Receipt Date: 20240501
  Transmission Date: 20240716
  Serious: No
  Sender: FDA-Public Use
  Company Number: US-ARIS GLOBAL-AXS202311-001492

PATIENT
  Sex: Female

DRUGS (9)
  1. SUNOSI [Suspect]
     Active Substance: SOLRIAMFETOL
     Indication: Somnolence
     Route: 048
  2. RITALIN [Suspect]
     Active Substance: METHYLPHENIDATE HYDROCHLORIDE
     Indication: Somnolence
     Route: 048
  3. XYREM [Suspect]
     Active Substance: SODIUM OXYBATE
     Indication: Somnolence
     Route: 065
  4. XYREM [Suspect]
     Active Substance: SODIUM OXYBATE
     Route: 065
  5. XYREM [Suspect]
     Active Substance: SODIUM OXYBATE
     Route: 065
  6. XYREM [Suspect]
     Active Substance: SODIUM OXYBATE
     Route: 065
  7. PROVIGIL [Suspect]
     Active Substance: MODAFINIL
     Indication: Somnolence
     Route: 048
  8. CLOBETASOL [Concomitant]
     Active Substance: CLOBETASOL
     Indication: Product used for unknown indication
     Route: 065
  9. MARLISSA-28 [Concomitant]
     Indication: Product used for unknown indication
     Dosage: PER MED DOC
     Route: 065

REACTIONS (1)
  - Therapeutic product effect incomplete [Unknown]
